FAERS Safety Report 10437340 (Version 1)
Quarter: 2014Q3

REPORT INFORMATION
  Report Type: Spontaneous
  Country: IT (occurrence: IT)
  Receive Date: 20140908
  Receipt Date: 20140908
  Transmission Date: 20150326
  Serious: Yes (Other)
  Sender: FDA-Public Use
  Company Number: IT-JNJFOC-20140902170

PATIENT
  Age: 14 Year
  Sex: Male

DRUGS (1)
  1. TOPAMAX [Suspect]
     Active Substance: TOPIRAMATE
     Indication: EPILEPSY
     Route: 048
     Dates: start: 20131030, end: 20140120

REACTIONS (2)
  - Substance-induced psychotic disorder [Recovered/Resolved]
  - Ideas of reference [Recovered/Resolved]

NARRATIVE: CASE EVENT DATE: 20140102
